FAERS Safety Report 18429263 (Version 1)
Quarter: 2020Q4

REPORT INFORMATION
  Report Type: Spontaneous
  Country: NL (occurrence: NL)
  Receive Date: 20201026
  Receipt Date: 20201026
  Transmission Date: 20210114
  Serious: Yes (Other)
  Sender: FDA-Public Use
  Company Number: NVSC2020NL284658

PATIENT
  Age: 61 Year
  Sex: Male

DRUGS (4)
  1. SALT TABLETS [Concomitant]
     Active Substance: SODIUM CHLORIDE
     Indication: BLOOD SODIUM
     Dosage: UNK
     Route: 065
  2. PREDNISONE. [Suspect]
     Active Substance: PREDNISONE
     Dosage: 5 MG, QD
     Route: 065
  3. OPDIVO [Concomitant]
     Active Substance: NIVOLUMAB
     Indication: LUNG NEOPLASM MALIGNANT
     Dosage: UNK (MAINTENANCE)
     Route: 065
  4. PREDNISONE. [Suspect]
     Active Substance: PREDNISONE
     Indication: BLOOD CORTICOTROPHIN
     Dosage: UNK (TAPER)
     Route: 065

REACTIONS (2)
  - Adrenal insufficiency [Unknown]
  - Product use in unapproved indication [Unknown]
